FAERS Safety Report 4281600-9 (Version None)
Quarter: 2004Q1

REPORT INFORMATION
  Report Type: 
  Country: None (occurrence: None)
  Receive Date: 20040123
  Receipt Date: 20030710
  Transmission Date: 20041129
  Serious: Yes (Other)
  Sender: FDA-Public Use
  Company Number: HQWYE952311JUL03

PATIENT
  Age: 75 Year
  Sex: Female

DRUGS (1)
  1. CORDARONE [Suspect]
     Dosage: ORAL
     Route: 048
     Dates: start: 20030401

REACTIONS (2)
  - CORNEAL DYSTROPHY [None]
  - HALO VISION [None]
